FAERS Safety Report 8288979-1 (Version None)
Quarter: 2012Q2

REPORT INFORMATION
  Report Type: 
  Country: None (occurrence: None)
  Receive Date: 20120417
  Receipt Date: 20120416
  Transmission Date: 20120825
  Serious: Yes (Death, Other)
  Sender: FDA-Public Use
  Company Number: JP-BAYER-2011-023645

PATIENT
  Age: 75 Year
  Sex: Female

DRUGS (13)
  1. TIEKAPTO [Concomitant]
     Dosage: 600 MG, UNK
     Route: 048
     Dates: end: 20110315
  2. ACETAMINOPHEN [Concomitant]
     Indication: PYREXIA
     Dosage: 400 MG, PRN
     Route: 048
     Dates: start: 20110304, end: 20110703
  3. LIVACT [Concomitant]
     Indication: HYPOALBUMINAEMIA
     Dosage: 3 DF, UNK
     Route: 048
     Dates: start: 20110519, end: 20110703
  4. SELBEX [Concomitant]
     Dosage: 150 MG, UNK
     Route: 048
     Dates: end: 20110703
  5. MERISLON [Concomitant]
     Indication: PSYCHOSOMATIC DISEASE
     Dosage: 18 MG, UNK
     Route: 048
     Dates: start: 20110316, end: 20110703
  6. BIO-THREE [Concomitant]
     Indication: DIARRHOEA
     Dosage: 3 DF, UNK
     Route: 048
     Dates: start: 20110519, end: 20110703
  7. DIAZEPAM [Concomitant]
     Indication: PSYCHOSOMATIC DISEASE
     Dosage: 2 MG, UNK
     Route: 048
     Dates: start: 20110316, end: 20110703
  8. MENITAZINE [Concomitant]
     Dosage: 18 MG, UNK
     Route: 048
     Dates: end: 20110315
  9. NEXAVAR [Suspect]
     Indication: HEPATIC NEOPLASM MALIGNANT
     Dosage: DAILY DOSE 600 MG
  10. NEXAVAR [Suspect]
     Dosage: 400 MG, QD
     Route: 048
     Dates: start: 20110303, end: 20110703
  11. TAGAMET [Concomitant]
     Indication: GASTRITIS
     Dosage: 600 MG, UNK
     Route: 048
     Dates: start: 20110316, end: 20110703
  12. URSODIOL [Concomitant]
     Dosage: 300 MG, UNK
     Route: 048
     Dates: end: 20110703
  13. ERISPAN [Concomitant]
     Dosage: 0.75 MG, UNK
     Route: 048
     Dates: end: 20110315

REACTIONS (6)
  - DUODENAL ULCER PERFORATION [None]
  - HYPERTENSION [None]
  - SHOCK HAEMORRHAGIC [None]
  - INFECTIOUS PERITONITIS [None]
  - PALMAR-PLANTAR ERYTHRODYSAESTHESIA SYNDROME [None]
  - DUODENAL ULCER HAEMORRHAGE [None]
